FAERS Safety Report 10377266 (Version 2)
Quarter: 2014Q3

REPORT INFORMATION
  Report Type: Spontaneous
  Country: FR (occurrence: FR)
  Receive Date: 20140812
  Receipt Date: 20140924
  Transmission Date: 20150326
  Serious: Yes (Hospitalization, Other)
  Sender: FDA-Public Use
  Company Number: FR-ALVOGEN-2014AL001228

PATIENT
  Age: 51 Year
  Sex: Female

DRUGS (1)
  1. DOXORUBICIN [Suspect]
     Active Substance: DOXORUBICIN
     Indication: INFLAMMATORY CARCINOMA OF THE BREAST

REACTIONS (2)
  - Renal failure acute [Recovering/Resolving]
  - Nephrotic syndrome [Recovered/Resolved]
